FAERS Safety Report 6860186-6 (Version None)
Quarter: 2010Q3

REPORT INFORMATION
  Report Type: 
  Country: None (occurrence: None)
  Receive Date: 20100720
  Receipt Date: 20100709
  Transmission Date: 20110219
  Serious: Yes (Hospitalization)
  Sender: FDA-Public Use
  Company Number: DE-WYE-H15956910

PATIENT
  Sex: Male
  Weight: 87 kg

DRUGS (6)
  1. TEMSIROLIMUS [Suspect]
     Indication: RENAL CELL CARCINOMA
     Dosage: 25 MG ONCE
     Route: 042
     Dates: start: 20100624
  2. ISOSORBIDE DINITRATE [Concomitant]
     Indication: CORONARY ARTERY DISEASE
     Dosage: UNKNOWN
     Dates: start: 19870101
  3. LOVASTATIN [Concomitant]
     Indication: CORONARY ARTERY DISEASE
     Dosage: UNKNOWN
     Dates: start: 19870101
  4. CLOPIDOGREL [Concomitant]
     Indication: CORONARY ARTERY DISEASE
     Dosage: UNKNOWN
     Dates: start: 20090101
  5. BEVACIZUMAB [Concomitant]
     Indication: RENAL CELL CARCINOMA
     Dosage: 870 MG ONCE
     Route: 042
     Dates: start: 20100624
  6. METOPROLOL TARTRATE [Concomitant]
     Indication: CORONARY ARTERY DISEASE
     Dosage: UNKNOWN
     Dates: start: 19870101

REACTIONS (2)
  - CORONARY ARTERY DISEASE [None]
  - SYNCOPE [None]
